FAERS Safety Report 13466233 (Version 1)
Quarter: 2017Q2

REPORT INFORMATION
  Report Type: Spontaneous
  Country: US (occurrence: US)
  Receive Date: 20170421
  Receipt Date: 20170421
  Transmission Date: 20170830
  Serious: No
  Sender: FDA-Public Use
  Company Number: US-JNJFOC-20170418309

PATIENT
  Sex: Male
  Weight: 100.25 kg

DRUGS (1)
  1. CONCERTA [Suspect]
     Active Substance: METHYLPHENIDATE HYDROCHLORIDE
     Indication: ATTENTION DEFICIT/HYPERACTIVITY DISORDER
     Route: 048
     Dates: end: 201702

REACTIONS (4)
  - Stress [Unknown]
  - Weight fluctuation [Unknown]
  - Palpitations [Unknown]
  - Insomnia [Unknown]

NARRATIVE: CASE EVENT DATE: 2017
